FAERS Safety Report 10268097 (Version 1)
Quarter: 2014Q2

REPORT INFORMATION
  Report Type: Spontaneous
  Country: US (occurrence: None)
  Receive Date: 20140625
  Receipt Date: 20140625
  Transmission Date: 20141212
  Serious: Yes (Death, Other)
  Sender: FDA-Public Use
  Company Number: SYM-2014-22447

PATIENT
  Age: 42 Year
  Sex: Male

DRUGS (2)
  1. WELLBUTRIN (BUPROPION HYDROCHLORIDE) (TABLET) (BUPROPION HYDROCHLORIDE) [Suspect]
     Indication: PRODUCT USED FOR UNKNOWN INDICATION
     Route: 048
  2. ZOLOFT [Suspect]
     Indication: ANXIETY
     Route: 048

REACTIONS (3)
  - Completed suicide [None]
  - Aggression [None]
  - Psychotic disorder [None]
